FAERS Safety Report 9619778 (Version 8)
Quarter: 2014Q2

REPORT INFORMATION
  Report Type: Report from Study
  Country: JP (occurrence: JP)
  Receive Date: 20131014
  Receipt Date: 20140610
  Transmission Date: 20141212
  Serious: Yes (Hospitalization)
  Sender: FDA-Public Use
  Company Number: JP-GLAXOSMITHKLINE-B0929698A

PATIENT
  Age: 43 Year
  Sex: Female
  Weight: 56 kg

DRUGS (15)
  1. VOTRIENT 200MG [Suspect]
     Indication: SYNOVIAL SARCOMA
     Dosage: 800MG PER DAY
     Route: 048
     Dates: start: 20130921, end: 20131003
  2. VOTRIENT 200MG [Suspect]
     Indication: SYNOVIAL SARCOMA
     Dosage: 600MG PER DAY
     Route: 048
     Dates: start: 20131004, end: 20131017
  3. VOTRIENT 200MG [Suspect]
     Indication: SYNOVIAL SARCOMA
     Route: 048
     Dates: start: 20131018, end: 20140123
  4. DEXAMETHASONE [Suspect]
     Route: 065
  5. CODEINE PHOSPHATE [Concomitant]
     Dosage: 20MG THREE TIMES PER DAY
     Route: 048
     Dates: start: 20131004
  6. GASTER [Concomitant]
     Route: 065
  7. NAUZELIN [Concomitant]
     Route: 065
  8. SERENACE [Concomitant]
     Route: 065
  9. LOXONIN [Concomitant]
     Route: 065
  10. MUCOSTA [Concomitant]
     Route: 065
  11. AMLODIPINE [Concomitant]
     Route: 048
  12. THYRADIN [Concomitant]
     Route: 048
  13. FUROSEMIDE [Concomitant]
     Route: 065
  14. ALDACTONE A [Concomitant]
     Route: 048
  15. PROMAC [Concomitant]
     Route: 048

REACTIONS (7)
  - Hyperthyroidism [Recovering/Resolving]
  - Vomiting [Recovering/Resolving]
  - Nausea [Recovering/Resolving]
  - Dehydration [Unknown]
  - Left ventricular dysfunction [Recovering/Resolving]
  - Hepatic function abnormal [Recovering/Resolving]
  - Oedema [Recovering/Resolving]
